FAERS Safety Report 20687988 (Version 1)
Quarter: 2022Q2

REPORT INFORMATION
  Report Type: Spontaneous
  Country: US (occurrence: US)
  Receive Date: 20220408
  Receipt Date: 20220408
  Transmission Date: 20220721
  Serious: Yes (Hospitalization, Other)
  Sender: FDA-Public Use
  Company Number: US-SA-SAC20220406001095

PATIENT
  Age: 47 Year
  Sex: Male

DRUGS (1)
  1. KEVZARA [Suspect]
     Active Substance: SARILUMAB
     Indication: Rheumatoid arthritis
     Dosage: 200MG/1.14 ML200 MG, QOW
     Route: 058
     Dates: start: 20220316

REACTIONS (2)
  - Pneumothorax [Unknown]
  - Shoulder operation [Unknown]

NARRATIVE: CASE EVENT DATE: 20220324
